FAERS Safety Report 17106611 (Version 1)
Quarter: 2019Q4

REPORT INFORMATION
  Report Type: Spontaneous
  Country: US (occurrence: US)
  Receive Date: 20191203
  Receipt Date: 20191203
  Transmission Date: 20200122
  Serious: Yes (Other)
  Sender: FDA-Public Use
  Company Number: US-VERTEX PHARMACEUTICALS-2019-011785

PATIENT
  Sex: Female

DRUGS (2)
  1. ORKAMBI [Suspect]
     Active Substance: IVACAFTOR\LUMACAFTOR
     Indication: CYSTIC FIBROSIS
     Dosage: 200MG/125MG TABLET(FREQUENCY UNKNOWN)
     Route: 048
  2. HYPERSAL [Concomitant]
     Active Substance: SODIUM CHLORIDE

REACTIONS (2)
  - Drug hypersensitivity [Unknown]
  - Blood pressure increased [Unknown]
